FAERS Safety Report 18665597 (Version 6)
Quarter: 2021Q3

REPORT INFORMATION
  Report Type: Spontaneous
  Country: CA (occurrence: CA)
  Receive Date: 20201226
  Receipt Date: 20210728
  Transmission Date: 20211014
  Serious: Yes (Other)
  Sender: FDA-Public Use
  Company Number: CA-CELLTRION INC.-2020CA025018

PATIENT

DRUGS (14)
  1. INFLECTRA [Suspect]
     Active Substance: INFLIXIMAB-DYYB
     Dosage: 10 MG/KG (AT WEEK 0, 2, 6, THEN EVERY 8 WEEKS)
     Route: 042
     Dates: start: 20200804, end: 20200804
  2. INFLECTRA [Suspect]
     Active Substance: INFLIXIMAB-DYYB
     Dosage: 10 MG/KG EVERY 8 WEEKS
     Route: 042
     Dates: start: 20210310
  3. INFLECTRA [Suspect]
     Active Substance: INFLIXIMAB-DYYB
     Dosage: 10 MG/KG EVERY 8 WEEKS
     Route: 042
     Dates: start: 20210310
  4. INFLECTRA [Suspect]
     Active Substance: INFLIXIMAB-DYYB
     Dosage: 10 MG/KG EVERY 8 WEEK
     Route: 042
     Dates: start: 20210603
  5. INFLECTRA [Suspect]
     Active Substance: INFLIXIMAB-DYYB
     Dosage: 10 MG/KG (AT WEEK 0, 2, 6, THEN EVERY 8 WEEKS)
     Route: 042
     Dates: start: 20201217
  6. PREDNISONE. [Concomitant]
     Active Substance: PREDNISONE
     Dosage: 30 MG, DAILY (OD TAPERING STARTED ON 40 MG)
     Route: 065
     Dates: start: 20200706
  7. INFLECTRA [Suspect]
     Active Substance: INFLIXIMAB-DYYB
     Dosage: 10 MG/KG EVERY 8 WEEKS
     Route: 042
     Dates: start: 20210128
  8. INFLECTRA [Suspect]
     Active Substance: INFLIXIMAB-DYYB
     Dosage: 10 MG/KG EVERY 8 WEEKS
     Route: 042
     Dates: start: 20210310
  9. INFLECTRA [Suspect]
     Active Substance: INFLIXIMAB-DYYB
     Indication: COLITIS ULCERATIVE
     Dosage: 10 MG/KG (AT WEEK 0, 2, 6, THEN EVERY 8 WEEKS)
     Route: 042
     Dates: start: 20200720, end: 20200720
  10. INFLECTRA [Suspect]
     Active Substance: INFLIXIMAB-DYYB
     Dosage: 10 MG/KG EVERY 8 WEEK
     Route: 042
     Dates: start: 20210714
  11. INFLECTRA [Suspect]
     Active Substance: INFLIXIMAB-DYYB
     Dosage: 10 MG/KG (AT WEEK 0, 2, 6, THEN EVERY 8 WEEKS)
     Route: 042
     Dates: start: 20200831, end: 20200831
  12. INFLECTRA [Suspect]
     Active Substance: INFLIXIMAB-DYYB
     Dosage: 10 MG/KG EVERY 8 WEEKS
     Route: 042
     Dates: start: 20210421
  13. INFLECTRA [Suspect]
     Active Substance: INFLIXIMAB-DYYB
     Dosage: 10 MG/KG (AT WEEK 0, 2, 6, THEN EVERY 8 WEEKS)
     Route: 042
     Dates: start: 20201026
  14. INFLECTRA [Suspect]
     Active Substance: INFLIXIMAB-DYYB
     Dosage: 10 MG/KG (AT WEEK 0, 2, 6, THEN EVERY 8 WEEKS)
     Route: 042
     Dates: start: 20200804, end: 20200804

REACTIONS (20)
  - Blood pressure diastolic decreased [Unknown]
  - Heart rate decreased [Unknown]
  - Weight increased [Unknown]
  - Discomfort [Recovered/Resolved]
  - Nausea [Recovered/Resolved]
  - Dry eye [Not Recovered/Not Resolved]
  - Off label use [Unknown]
  - Sinus headache [Not Recovered/Not Resolved]
  - Hot flush [Recovered/Resolved]
  - Dry mouth [Not Recovered/Not Resolved]
  - Disease recurrence [Recovered/Resolved]
  - Fatigue [Unknown]
  - Headache [Not Recovered/Not Resolved]
  - Hyperhidrosis [Unknown]
  - Nasal dryness [Not Recovered/Not Resolved]
  - Weight decreased [Unknown]
  - Iron deficiency [Unknown]
  - Skin lesion [Not Recovered/Not Resolved]
  - Feeling hot [Recovered/Resolved]
  - Paranasal sinus discomfort [Not Recovered/Not Resolved]

NARRATIVE: CASE EVENT DATE: 20200804
